FAERS Safety Report 13426964 (Version 1)
Quarter: 2017Q2

REPORT INFORMATION
  Report Type: Spontaneous
  Country: BR (occurrence: BR)
  Receive Date: 20170411
  Receipt Date: 20170411
  Transmission Date: 20170830
  Serious: Yes (Life-Threatening, Hospitalization, Other)
  Sender: FDA-Public Use
  Company Number: BR-SUN PHARMACEUTICAL INDUSTRIES LTD-2016R1-111260

PATIENT
  Age: 25 Year
  Sex: Female

DRUGS (4)
  1. MIDAZOLAM [Suspect]
     Active Substance: MIDAZOLAM HYDROCHLORIDE
     Indication: SEDATION
     Dosage: 4 MG, UNK
     Route: 042
  2. FENTANYL. [Suspect]
     Active Substance: FENTANYL
     Indication: SEDATION
     Dosage: 50 MCG (T12-L1 INTERSPACE)
     Route: 008
  3. FENTANYL. [Suspect]
     Active Substance: FENTANYL
     Dosage: 50 MCG (T2-T3 INTERSPACE)
     Route: 008
  4. FENTANYL. [Suspect]
     Active Substance: FENTANYL
     Indication: EPIDURAL ANAESTHESIA
     Dosage: 50 MCG
     Route: 042

REACTIONS (4)
  - Pulmonary oedema [Recovered/Resolved]
  - Cardio-respiratory arrest [Recovered/Resolved]
  - Cardiac arrest [Recovered/Resolved]
  - Oliguria [Recovered/Resolved]
